FAERS Safety Report 6630808-3 (Version None)
Quarter: 2010Q1

REPORT INFORMATION
  Report Type: 
  Country: None (occurrence: None)
  Receive Date: 20100310
  Receipt Date: 20100310
  Transmission Date: 20100710
  Serious: Yes (Hospitalization)
  Sender: FDA-Public Use
  Company Number: None

PATIENT
  Age: 72 Year
  Sex: Male
  Weight: 70.5 kg

DRUGS (3)
  1. OXALIPLATIN [Suspect]
     Indication: GASTRIC CANCER
     Dosage: 130 MG/M2 D1 IV
     Route: 042
     Dates: start: 20100205, end: 20100212
  2. CETUXIMAB [Suspect]
     Indication: GASTRIC CANCER
     Dosage: 250 MG/M2 D1, 8, 15 IV
     Route: 042
     Dates: start: 20100205, end: 20100212
  3. XELODA [Suspect]
     Indication: GASTRIC CANCER
     Dosage: 850MG/M2 D1-14 BID PO
     Route: 048
     Dates: start: 20100205, end: 20100212

REACTIONS (7)
  - ABDOMINAL DISCOMFORT [None]
  - BLOOD POTASSIUM DECREASED [None]
  - DEHYDRATION [None]
  - DYSPHAGIA [None]
  - NAUSEA [None]
  - THROAT IRRITATION [None]
  - VOMITING [None]
